FAERS Safety Report 25468873 (Version 1)
Quarter: 2025Q2

REPORT INFORMATION
  Report Type: Spontaneous
  Country: US (occurrence: None)
  Receive Date: 20250623
  Receipt Date: 20250623
  Transmission Date: 20250716
  Serious: Yes (Life-Threatening, Hospitalization, Other)
  Sender: FDA-CTU
  Company Number: None

PATIENT
  Age: 25 Year
  Sex: Female
  Weight: 55 kg

DRUGS (2)
  1. ZOLOFT [Suspect]
     Active Substance: SERTRALINE HYDROCHLORIDE
     Indication: Depression
     Dosage: FREQUENCY : DAILY;?
     Route: 048
     Dates: start: 20200603, end: 20200825
  2. PROPIOMAZINE [Concomitant]
     Active Substance: PROPIOMAZINE

REACTIONS (8)
  - Insomnia [None]
  - Hyperhidrosis [None]
  - Suicidal ideation [None]
  - Suicidal behaviour [None]
  - Dysphoria [None]
  - Anxiety [None]
  - Suicide attempt [None]
  - Depersonalisation/derealisation disorder [None]

NARRATIVE: CASE EVENT DATE: 20200630
